FAERS Safety Report 7910241-4 (Version None)
Quarter: 2011Q4

REPORT INFORMATION
  Report Type: 
  Country: None (occurrence: None)
  Receive Date: 20111111
  Receipt Date: 20111101
  Transmission Date: 20120403
  Serious: Yes (Life-Threatening, Hospitalization, Disabling)
  Sender: FDA-Public Use
  Company Number: US-ROCHE-1008898

PATIENT
  Sex: Male

DRUGS (9)
  1. COUMADIN [Suspect]
     Indication: PRODUCT USED FOR UNKNOWN INDICATION
     Route: 048
  2. ACTIVASE [Suspect]
     Indication: PLEURAL EFFUSION
     Route: 050
     Dates: start: 20110801
  3. KLONOPIN [Suspect]
     Indication: PRODUCT USED FOR UNKNOWN INDICATION
     Route: 048
     Dates: start: 20110301
  4. PREDNISONE TAB [Suspect]
     Indication: PERICARDITIS
     Route: 048
  5. LOVENOX [Suspect]
     Indication: PRODUCT USED FOR UNKNOWN INDICATION
  6. HYDROCHLOROTHIAZIDE [Concomitant]
     Route: 048
  7. TOPROL-XL [Concomitant]
     Indication: HYPERTENSION
     Route: 048
  8. PROTONIX [Concomitant]
     Indication: GASTROOESOPHAGEAL REFLUX DISEASE
  9. NAPROSYN [Suspect]
     Indication: PRODUCT USED FOR UNKNOWN INDICATION
     Route: 048

REACTIONS (16)
  - GROIN PAIN [None]
  - AGITATION [None]
  - PERICARDITIS [None]
  - OEDEMA PERIPHERAL [None]
  - ECCHYMOSIS [None]
  - EFFUSION [None]
  - ABNORMAL BEHAVIOUR [None]
  - MENTAL DISORDER [None]
  - RENAL FAILURE [None]
  - INTERNATIONAL NORMALISED RATIO ABNORMAL [None]
  - DEEP VEIN THROMBOSIS [None]
  - HYPOAESTHESIA [None]
  - PULMONARY EMBOLISM [None]
  - DISABILITY [None]
  - PAIN [None]
  - AGGRESSION [None]
